FAERS Safety Report 15616114 (Version 1)
Quarter: 2018Q4

REPORT INFORMATION
  Report Type: Report from Study
  Country: US (occurrence: US)
  Receive Date: 20181114
  Receipt Date: 20181114
  Transmission Date: 20190205
  Serious: Yes (Death, Hospitalization)
  Sender: FDA-Public Use
  Company Number: US-TEVA-2018-US-975277

PATIENT
  Age: 49 Year
  Sex: Male

DRUGS (3)
  1. NIFEDIPINE. [Suspect]
     Active Substance: NIFEDIPINE
     Route: 048
  2. LISINOPRIL. [Suspect]
     Active Substance: LISINOPRIL
     Route: 048
  3. NAPROXEN. [Suspect]
     Active Substance: NAPROXEN
     Route: 048

REACTIONS (5)
  - Toxicity to various agents [Unknown]
  - Shock [Fatal]
  - Cardiac arrest [Fatal]
  - Overdose [Unknown]
  - Hypotension [Recovering/Resolving]

NARRATIVE: CASE EVENT DATE: 2002
